FAERS Safety Report 7987000-X (Version None)
Quarter: 2011Q4

REPORT INFORMATION
  Report Type: 
  Country: None (occurrence: None)
  Receive Date: 20111216
  Receipt Date: 20110309
  Transmission Date: 20120403
  Serious: No
  Sender: FDA-Public Use
  Company Number: US-BRISTOL-MYERS SQUIBB COMPANY-15598246

PATIENT
  Age: 16 Year
  Sex: Male
  Weight: 104 kg

DRUGS (2)
  1. ABILIFY [Suspect]
     Dosage: INITIATED 15MG AND DECREASED TO 15MG
  2. KLONOPIN [Concomitant]

REACTIONS (2)
  - WEIGHT INCREASED [None]
  - DROOLING [None]
